FAERS Safety Report 4576978-2 (Version None)
Quarter: 2005Q1

REPORT INFORMATION
  Report Type: 
  Country: None (occurrence: None)
  Receive Date: 20050208
  Receipt Date: 20050124
  Transmission Date: 20050727
  Serious: Yes (Hospitalization)
  Sender: FDA-Public Use
  Company Number: 2004BI000258

PATIENT
  Age: 54 Year
  Sex: Female
  Weight: 63.5036 kg

DRUGS (2)
  1. AVONEX [Suspect]
     Indication: MULTIPLE SCLEROSIS
     Dates: end: 19991101
  2. PILL (NOS) [Concomitant]

REACTIONS (4)
  - CIRCULATORY COLLAPSE [None]
  - DIFFICULTY IN WALKING [None]
  - FALL [None]
  - INTERNAL INJURY [None]
